FAERS Safety Report 18776783 (Version 1)
Quarter: 2021Q1

REPORT INFORMATION
  Report Type: Spontaneous
  Country: US (occurrence: US)
  Receive Date: 20210122
  Receipt Date: 20210122
  Transmission Date: 20210419
  Serious: No
  Sender: FDA-Public Use
  Company Number: US-GALDERMA-US2020002319

PATIENT
  Sex: Male

DRUGS (2)
  1. DESONIDE (DESONIDE) 0.05% [Suspect]
     Active Substance: DESONIDE
     Indication: ROSACEA
     Dosage: 0.05%
     Route: 061
     Dates: start: 2019
  2. DESONIDE (DESONIDE) 0.05% [Suspect]
     Active Substance: DESONIDE
     Indication: ECZEMA

REACTIONS (3)
  - Drug ineffective for unapproved indication [Recovered/Resolved]
  - Drug ineffective [Unknown]
  - Product use in unapproved indication [Recovered/Resolved]

NARRATIVE: CASE EVENT DATE: 2019
